FAERS Safety Report 25410136 (Version 1)
Quarter: 2025Q2

REPORT INFORMATION
  Report Type: Spontaneous
  Country: US (occurrence: US)
  Receive Date: 20250607
  Receipt Date: 20250607
  Transmission Date: 20250716
  Serious: Yes (Life-Threatening, Hospitalization, Other)
  Sender: AMGEN
  Company Number: US-AMGEN-USASP2025107462

PATIENT

DRUGS (7)
  1. PREDNISONE [Suspect]
     Active Substance: PREDNISONE
     Indication: Pain
     Route: 065
  2. CELECOXIB [Concomitant]
     Active Substance: CELECOXIB
  3. ACETAMINOPHEN [Concomitant]
     Active Substance: ACETAMINOPHEN
  4. ROPIVACAINE [Concomitant]
     Active Substance: ROPIVACAINE
  5. EPINEPHRINE [Concomitant]
     Active Substance: EPINEPHRINE
  6. CLONIDINE [Concomitant]
     Active Substance: CLONIDINE
  7. KETOROLAC [Concomitant]
     Active Substance: KETOROLAC TROMETHAMINE

REACTIONS (10)
  - Alcohol withdrawal syndrome [Unknown]
  - Syncope [Unknown]
  - Presyncope [Unknown]
  - Hypotension [Unknown]
  - Nausea [Unknown]
  - Vomiting [Unknown]
  - Seizure [Unknown]
  - Pain [Unknown]
  - Drug ineffective for unapproved indication [Unknown]
  - Off label use [Unknown]
